FAERS Safety Report 7457892-1 (Version None)
Quarter: 2011Q2

REPORT INFORMATION
  Report Type: 
  Country: None (occurrence: None)
  Receive Date: 20110504
  Receipt Date: 20110421
  Transmission Date: 20111010
  Serious: Yes (Other)
  Sender: FDA-Public Use
  Company Number: US-JNJFOC-20110409794

PATIENT
  Age: 54 Year
  Sex: Female

DRUGS (6)
  1. NEXIUM [Concomitant]
  2. CELEXA [Concomitant]
  3. REMICADE [Suspect]
     Indication: COLITIS ULCERATIVE
     Route: 042
  4. XANAX [Concomitant]
  5. VITAMIN TAB [Concomitant]
  6. LOVAZA [Concomitant]

REACTIONS (1)
  - COLON CANCER [None]
